FAERS Safety Report 5060154-3 (Version None)
Quarter: 2006Q3

REPORT INFORMATION
  Report Type: 
  Country: None (occurrence: None)
  Receive Date: 20060724
  Receipt Date: 20050321
  Transmission Date: 20061208
  Serious: Yes (Hospitalization)
  Sender: FDA-Public Use
  Company Number: US-NOVOPROD-243078

PATIENT
  Age: 48 Year
  Sex: Female
  Weight: 99 kg

DRUGS (8)
  1. NOVOLOG MIX 70/30 [Suspect]
     Indication: INSULIN-REQUIRING TYPE II DIABETES MELLITUS
     Dosage: 12 U, QD
     Route: 058
     Dates: start: 20050318, end: 20050320
  2. NOVOLOG MIX 70/30 [Suspect]
     Dosage: 30 U, QD
     Route: 058
     Dates: start: 20050321
  3. ALTACE [Concomitant]
     Indication: HYPERTENSION
     Dosage: 5 MG, QD
     Route: 048
     Dates: start: 20050316
  4. SYNTHROID [Concomitant]
     Indication: HYPOTHYROIDISM
     Dosage: 200 MCQ, QD
     Route: 048
     Dates: start: 19990101
  5. PAXIL [Concomitant]
     Indication: DEPRESSION
     Dosage: 40 MG, QD
     Route: 048
     Dates: start: 20010101
  6. BUSPAR [Concomitant]
     Indication: ANXIETY
     Dosage: 30 MG, QD
     Dates: start: 20010101
  7. ZANTAC [Concomitant]
     Dosage: 300 MG, QD
     Route: 048
     Dates: start: 20050321
  8. ASPIRIN [Concomitant]
     Dosage: 162 MG, QD
     Route: 048
     Dates: start: 20050321

REACTIONS (1)
  - CHEST PAIN [None]
